FAERS Safety Report 5302568-X (Version None)
Quarter: 2007Q2

REPORT INFORMATION
  Report Type: 
  Country: None (occurrence: None)
  Receive Date: 20070419
  Receipt Date: 20070320
  Transmission Date: 20071010
  Serious: Yes (Hospitalization, Other)
  Sender: FDA-Public Use
  Company Number: US-PFIZER INC-2006151052

PATIENT
  Sex: Male
  Weight: 65.8 kg

DRUGS (3)
  1. BEXTRA [Suspect]
     Indication: PAIN MANAGEMENT
     Dates: start: 20040401, end: 20050401
  2. BEXTRA [Suspect]
     Indication: INFLAMMATION
  3. BEXTRA [Suspect]
     Indication: ARTHRITIS

REACTIONS (1)
  - CEREBROVASCULAR ACCIDENT [None]
